FAERS Safety Report 7339123-6 (Version None)
Quarter: 2011Q1

REPORT INFORMATION
  Report Type: 
  Country: None (occurrence: None)
  Receive Date: 20110228
  Receipt Date: 20110214
  Transmission Date: 20110831
  Serious: Yes (Hospitalization)
  Sender: FDA-Public Use
  Company Number: 2011GW000104

PATIENT
  Sex: Female

DRUGS (1)
  1. MAXAIR [Suspect]
     Indication: ASTHMA
     Dosage: 200 UG; INH
     Route: 055

REACTIONS (3)
  - COUGH [None]
  - CARDIAC DISORDER [None]
  - DRUG INEFFECTIVE [None]
